FAERS Safety Report 7732790-4 (Version None)
Quarter: 2011Q3

REPORT INFORMATION
  Report Type: 
  Country: None (occurrence: None)
  Receive Date: 20110907
  Receipt Date: 20110826
  Transmission Date: 20111222
  Serious: Yes (Hospitalization)
  Sender: FDA-Public Use
  Company Number: US-EISAI INC-E3810-04898-SPO-US

PATIENT
  Sex: Male

DRUGS (8)
  1. PLAVIX [Concomitant]
  2. DIAZEPAM [Concomitant]
     Indication: HYPERTENSION
     Route: 048
  3. ACIPHEX [Suspect]
     Dosage: UNKNOWN
     Route: 048
     Dates: end: 20100101
  4. DURAGESIC-100 [Suspect]
     Dosage: UNKNOWN
     Route: 062
     Dates: start: 20090101, end: 20110101
  5. GABAPENTIN [Concomitant]
  6. DURAGESIC-100 [Suspect]
     Indication: PAIN
     Dosage: UNKNOWN
     Route: 062
     Dates: end: 20090101
  7. LIPITOR [Concomitant]
     Route: 048
  8. LISINOPRIL [Concomitant]
     Indication: HYPERTENSION
     Route: 048

REACTIONS (4)
  - DRUG INEFFECTIVE [None]
  - HYPERCHLORHYDRIA [None]
  - ERUCTATION [None]
  - PERIPHERAL ARTERIAL OCCLUSIVE DISEASE [None]
